FAERS Safety Report 8789782 (Version 1)
Quarter: 2012Q4

REPORT INFORMATION
  Report Type: Spontaneous
  Country: US (occurrence: None)
  Receive Date: 20120911
  Receipt Date: 20120911
  Transmission Date: 20130627
  Serious: Yes (Other)
  Sender: FDA-Public Use
  Company Number: None

PATIENT
  Age: 49 Year
  Sex: Male

DRUGS (1)
  1. PREZISTA [Suspect]
     Route: 048
     Dates: start: 20120723, end: 20120905

REACTIONS (3)
  - Urticaria [None]
  - Dyspnoea [None]
  - Swelling face [None]
